FAERS Safety Report 13730418 (Version 1)
Quarter: 2017Q3

REPORT INFORMATION
  Report Type: Spontaneous
  Country: US (occurrence: US)
  Receive Date: 20170707
  Receipt Date: 20170707
  Transmission Date: 20171127
  Serious: No
  Sender: FDA-Public Use
  Company Number: US-JNJFOC-20170602133

PATIENT
  Age: 54 Year
  Sex: Female
  Weight: 54.43 kg

DRUGS (1)
  1. XARELTO [Suspect]
     Active Substance: RIVAROXABAN
     Indication: DEEP VEIN THROMBOSIS
     Route: 048

REACTIONS (3)
  - Asthenia [Unknown]
  - Hepatic enzyme increased [Unknown]
  - Fatigue [Unknown]

NARRATIVE: CASE EVENT DATE: 201610
